FAERS Safety Report 8652004 (Version 4)
Quarter: 2013Q3

REPORT INFORMATION
  Report Type: Report from Study
  Country: SE (occurrence: SE)
  Receive Date: 20120706
  Receipt Date: 20130718
  Transmission Date: 20140515
  Serious: Yes (Hospitalization)
  Sender: FDA-Public Use
  Company Number: SE-BRISTOL-MYERS SQUIBB COMPANY-16723413

PATIENT
  Age: 67 Year
  Sex: Male

DRUGS (5)
  1. SAXAGLIPTIN [Suspect]
     Indication: TYPE 2 DIABETES MELLITUS
     Dates: start: 20110323, end: 20111111
  2. METFORMIN HCL [Suspect]
     Indication: TYPE 2 DIABETES MELLITUS
  3. NOVOMIX [Suspect]
     Indication: TYPE 2 DIABETES MELLITUS
  4. ACTILYSE [Suspect]
     Dates: start: 20111111, end: 20111111
  5. ASPIRIN [Concomitant]
     Dosage: 1DF: } 100MG

REACTIONS (1)
  - Angioedema [Recovered/Resolved]
